FAERS Safety Report 8193686-X (Version None)
Quarter: 2012Q1

REPORT INFORMATION
  Report Type: 
  Country: None (occurrence: None)
  Receive Date: 20120308
  Receipt Date: 20120228
  Transmission Date: 20120608
  Serious: Yes (Hospitalization)
  Sender: FDA-Public Use
  Company Number: IE-MEDIMMUNE-MEDI-0015060

PATIENT
  Sex: Male

DRUGS (3)
  1. SYNAGIS [Suspect]
     Route: 030
     Dates: start: 20110905, end: 20110905
  2. ABDEC [Concomitant]
  3. IRON [Concomitant]

REACTIONS (1)
  - LOWER RESPIRATORY TRACT INFECTION [None]
